FAERS Safety Report 11540251 (Version 2)
Quarter: 2015Q4

REPORT INFORMATION
  Report Type: Spontaneous
  Country: US (occurrence: US)
  Receive Date: 20150923
  Receipt Date: 20151001
  Transmission Date: 20160304
  Serious: Yes (Death, Hospitalization)
  Sender: FDA-Public Use
  Company Number: US-UNITED THERAPEUTICS-UNT-2015-009089

PATIENT
  Age: 71 Year
  Sex: Female
  Weight: 78.5 kg

DRUGS (4)
  1. REMODULIN [Suspect]
     Active Substance: TREPROSTINIL
     Indication: PULMONARY HYPERTENSION
     Dosage: 0.01725 ?G/KG, CONTINUING
     Route: 058
     Dates: start: 20150420
  2. REMODULIN [Suspect]
     Active Substance: TREPROSTINIL
     Dosage: 0.01725 ?G/KG/MIN, CONTINUING
     Route: 058
  3. LETAIRIS [Concomitant]
     Active Substance: AMBRISENTAN
     Indication: PRODUCT USED FOR UNKNOWN INDICATION
  4. ADCIRCA [Concomitant]
     Active Substance: TADALAFIL
     Indication: PRODUCT USED FOR UNKNOWN INDICATION

REACTIONS (13)
  - Dyspnoea exertional [Unknown]
  - Death [Fatal]
  - Infusion site warmth [Unknown]
  - Oxygen consumption increased [Unknown]
  - Back pain [Unknown]
  - Infusion site oedema [Unknown]
  - Seasonal allergy [Unknown]
  - Pneumonia [Unknown]
  - Respiratory failure [Unknown]
  - Dyspnoea [Unknown]
  - Localised oedema [Unknown]
  - Infusion site pain [Unknown]
  - Infusion site induration [Unknown]

NARRATIVE: CASE EVENT DATE: 201507
